FAERS Safety Report 6757049-3 (Version None)
Quarter: 2010Q2

REPORT INFORMATION
  Report Type: 
  Country: None (occurrence: None)
  Receive Date: 20100604
  Receipt Date: 20100525
  Transmission Date: 20101027
  Serious: Yes (Hospitalization)
  Sender: FDA-Public Use
  Company Number: US-AMGEN-KDL414261

PATIENT
  Sex: Female

DRUGS (1)
  1. ENBREL [Suspect]
     Indication: RHEUMATOID ARTHRITIS
     Route: 058
     Dates: end: 20100425

REACTIONS (10)
  - ARTHRALGIA [None]
  - ATRIAL FIBRILLATION [None]
  - CARDIAC FAILURE [None]
  - COUGH [None]
  - DRUG INEFFECTIVE [None]
  - EYE DISCHARGE [None]
  - HYPERTENSION [None]
  - OEDEMA PERIPHERAL [None]
  - PAIN [None]
  - WALKING AID USER [None]
